FAERS Safety Report 5933979-7 (Version None)
Quarter: 2008Q4

REPORT INFORMATION
  Report Type: 
  Country: None (occurrence: None)
  Receive Date: 20081028
  Receipt Date: 20081028
  Transmission Date: 20090506
  Serious: No
  Sender: FDA-Public Use
  Company Number: None

PATIENT
  Age: 56 Year
  Sex: Male
  Weight: 104.3273 kg

DRUGS (4)
  1. CYMBALTA [Suspect]
     Indication: ANXIETY
     Dosage: 60 MG 1 DAILY PO (DURATION: 8 TO 10 MONTHS)
     Route: 048
  2. CYMBALTA [Suspect]
     Indication: DEPRESSION
     Dosage: 60 MG 1 DAILY PO (DURATION: 8 TO 10 MONTHS)
     Route: 048
  3. WELLBUTRIN [Concomitant]
  4. ACTOS [Concomitant]

REACTIONS (4)
  - ERECTILE DYSFUNCTION [None]
  - NO THERAPEUTIC RESPONSE [None]
  - PREMATURE EJACULATION [None]
  - SEXUAL DYSFUNCTION [None]
